FAERS Safety Report 23627831 (Version 1)
Quarter: 2024Q1

REPORT INFORMATION
  Report Type: Spontaneous
  Country: US (occurrence: None)
  Receive Date: 20240313
  Receipt Date: 20240313
  Transmission Date: 20240409
  Serious: No
  Sender: FDA-Public Use
  Company Number: None

PATIENT
  Age: 77 Year
  Sex: Female
  Weight: 77.11 kg

DRUGS (1)
  1. AUSTEDO [Suspect]
     Active Substance: DEUTETRABENAZINE
     Indication: Dyskinesia
     Dosage: FREQUENCY : TWICE A DAY;?
     Route: 048
     Dates: start: 20231225, end: 20240220

REACTIONS (5)
  - Pruritus [None]
  - Therapy cessation [None]
  - Psychotic disorder [None]
  - Anger [None]
  - Rhinorrhoea [None]

NARRATIVE: CASE EVENT DATE: 20240308
